FAERS Safety Report 4999727-2 (Version None)
Quarter: 2006Q2

REPORT INFORMATION
  Report Type: 
  Country: None (occurrence: None)
  Receive Date: 20060511
  Receipt Date: 20060420
  Transmission Date: 20061013
  Serious: Yes (Hospitalization)
  Sender: FDA-Public Use
  Company Number: US-GLAXOSMITHKLINE-A0602566A

PATIENT
  Age: 68 Year
  Sex: Female
  Weight: 68.1 kg

DRUGS (3)
  1. SALMETEROL [Suspect]
     Indication: CHRONIC OBSTRUCTIVE PULMONARY DISEASE
     Dosage: 1PUFF TWICE PER DAY
     Route: 055
     Dates: start: 20060208
  2. DILTIAZEM [Concomitant]
     Indication: HYPERTENSION
     Dosage: 180MG PER DAY
     Route: 048
     Dates: start: 19990101
  3. TRIAMTERENE [Concomitant]
     Indication: HYPERTENSION
     Dosage: 100MG PER DAY
     Route: 048
     Dates: start: 19990101

REACTIONS (1)
  - ACUTE RESPIRATORY FAILURE [None]
